FAERS Safety Report 13557527 (Version 1)
Quarter: 2017Q2

REPORT INFORMATION
  Report Type: Spontaneous
  Country: US (occurrence: US)
  Receive Date: 20170517
  Receipt Date: 20170517
  Transmission Date: 20170830
  Serious: No
  Sender: FDA-Public Use
  Company Number: None

PATIENT
  Age: 55 Year
  Sex: Female

DRUGS (1)
  1. COSENTYX [Suspect]
     Active Substance: SECUKINUMAB
     Indication: PSORIASIS
     Route: 058
     Dates: start: 20161214, end: 20170517

REACTIONS (5)
  - Therapy cessation [None]
  - Pain in extremity [None]
  - Back pain [None]
  - Therapy non-responder [None]
  - Oedema peripheral [None]

NARRATIVE: CASE EVENT DATE: 20170417
